FAERS Safety Report 6554319-9 (Version None)
Quarter: 2010Q1

REPORT INFORMATION
  Report Type: 
  Country: None (occurrence: None)
  Receive Date: 20100125
  Receipt Date: 20100125
  Transmission Date: 20100710
  Serious: Yes (Other)
  Sender: FDA-Public Use
  Company Number: None

PATIENT
  Age: 51 Year
  Sex: Female
  Weight: 58.9676 kg

DRUGS (1)
  1. ACTONEL [Suspect]
     Indication: OSTEOPOROSIS
     Dosage: ONE 1/MONTH PO
     Route: 048
     Dates: start: 20091209, end: 20091209

REACTIONS (7)
  - ABDOMINAL PAIN UPPER [None]
  - ASTHENIA [None]
  - CONSTIPATION [None]
  - DIARRHOEA [None]
  - INSOMNIA [None]
  - PYREXIA [None]
  - SOMNOLENCE [None]
